FAERS Safety Report 14580775 (Version 1)
Quarter: 2018Q1

REPORT INFORMATION
  Report Type: Spontaneous
  Country: DK (occurrence: DK)
  Receive Date: 20180228
  Receipt Date: 20180228
  Transmission Date: 20180509
  Serious: Yes (Life-Threatening)
  Sender: FDA-Public Use
  Company Number: DK-FRESENIUS KABI-FK201802291

PATIENT
  Age: 34 Year
  Sex: Female

DRUGS (2)
  1. OCTREOTIDE INJECTION (MANUFACTURER UNKNOWN) [Suspect]
     Active Substance: OCTREOTIDE
     Indication: HYPOGLYCAEMIA
     Route: 030
     Dates: start: 2005
  2. OCTREOTIDE INJECTION (MANUFACTURER UNKNOWN) [Suspect]
     Active Substance: OCTREOTIDE
     Route: 030

REACTIONS (3)
  - Abortion spontaneous [Unknown]
  - Product use in unapproved indication [Unknown]
  - Exposure during pregnancy [Unknown]
